FAERS Safety Report 6968656-7 (Version None)
Quarter: 2010Q3

REPORT INFORMATION
  Report Type: 
  Country: None (occurrence: None)
  Receive Date: 20100907
  Receipt Date: 20100902
  Transmission Date: 20110219
  Serious: Yes (Life-Threatening, Hospitalization)
  Sender: FDA-Public Use
  Company Number: GB-JNJFOC-20100900903

PATIENT
  Age: 88 Year
  Sex: Female

DRUGS (10)
  1. RISPERIDONE [Suspect]
     Indication: SENILE PSYCHOSIS
     Route: 048
  2. RISPERIDONE [Suspect]
     Route: 048
  3. BUMETANIDE [Suspect]
     Indication: PULMONARY OEDEMA
     Route: 048
  4. AMLODIPINE [Concomitant]
     Route: 065
  5. DOXAZOSIN MESYLATE [Concomitant]
     Route: 065
  6. FLUCLOXACILLIN [Concomitant]
     Indication: CELLULITIS
     Route: 065
  7. FUROSEMIDE [Concomitant]
     Indication: OEDEMA PERIPHERAL
     Route: 065
  8. FUROSEMIDE [Concomitant]
     Indication: RALES
     Route: 065
  9. MOXONIDINE [Concomitant]
     Route: 065
  10. ZOPICLONE [Concomitant]
     Indication: PRODUCT USED FOR UNKNOWN INDICATION
     Route: 065

REACTIONS (10)
  - ASTHENIA [None]
  - BRADYCARDIA [None]
  - CELLULITIS [None]
  - HYPOTENSION [None]
  - HYPOTHERMIA [None]
  - LIP SWELLING [None]
  - MALAISE [None]
  - OEDEMA PERIPHERAL [None]
  - RALES [None]
  - TACHYPNOEA [None]
